FAERS Safety Report 25827148 (Version 2)
Quarter: 2025Q4

REPORT INFORMATION
  Report Type: Report from Study
  Country: US (occurrence: US)
  Receive Date: 20250920
  Receipt Date: 20251017
  Transmission Date: 20260118
  Serious: Yes (Other)
  Sender: NOVARTIS
  Company Number: US-002147023-NVSC2025US145267

PATIENT
  Age: 56 Year
  Sex: Male

DRUGS (2)
  1. TASIGNA [Suspect]
     Active Substance: NILOTINIB
     Indication: Philadelphia positive chronic myeloid leukaemia
     Dosage: 200 MG, BID, TWO TABLETS TWICE A DAY
     Route: 048
     Dates: start: 201705, end: 202507
  2. SCEMBLIX [Suspect]
     Active Substance: ASCIMINIB HYDROCHLORIDE
     Indication: Philadelphia positive chronic myeloid leukaemia
     Dosage: 40 MG, BID
     Route: 048
     Dates: start: 20250722, end: 20250922

REACTIONS (5)
  - Arrhythmia [Recovered/Resolved]
  - Dizziness [Unknown]
  - Gait inability [Unknown]
  - Rash [Recovered/Resolved]
  - Weight increased [Unknown]

NARRATIVE: CASE EVENT DATE: 20170501
